FAERS Safety Report 8243149-8 (Version None)
Quarter: 2012Q1

REPORT INFORMATION
  Report Type: 
  Country: None (occurrence: None)
  Receive Date: 20120329
  Receipt Date: 20120319
  Transmission Date: 20120608
  Serious: Yes (Hospitalization)
  Sender: FDA-Public Use
  Company Number: US-JNJFOC-20120309233

PATIENT
  Sex: Female
  Weight: 108.86 kg

DRUGS (2)
  1. REMICADE [Suspect]
     Indication: PSORIATIC ARTHROPATHY
     Route: 042
     Dates: start: 20020101
  2. REMICADE [Suspect]
     Route: 042

REACTIONS (14)
  - DRUG INEFFECTIVE [None]
  - COUGH [None]
  - PSORIATIC ARTHROPATHY [None]
  - ANTIBIOTIC RESISTANT STAPHYLOCOCCUS TEST [None]
  - PANCREATITIS [None]
  - BEHCET'S SYNDROME [None]
  - ULCER [None]
  - NASOPHARYNGITIS [None]
  - BEDRIDDEN [None]
  - OSTEOMYELITIS [None]
  - GALLBLADDER DISORDER [None]
  - OROPHARYNGEAL PAIN [None]
  - INFLUENZA [None]
  - IMMUNE SYSTEM DISORDER [None]
